FAERS Safety Report 11722073 (Version 2)
Quarter: 2015Q4

REPORT INFORMATION
  Report Type: Spontaneous
  Country: US (occurrence: US)
  Receive Date: 20151111
  Receipt Date: 20151119
  Transmission Date: 20160304
  Serious: Yes (Other)
  Sender: FDA-Public Use
  Company Number: US-JNJFOC-20151015815

PATIENT
  Age: 82 Year
  Sex: Male
  Weight: 82.1 kg

DRUGS (20)
  1. XARELTO [Suspect]
     Active Substance: RIVAROXABAN
     Indication: CEREBROVASCULAR ACCIDENT PROPHYLAXIS
     Route: 048
     Dates: start: 20150729
  2. MUCINEX [Concomitant]
     Active Substance: GUAIFENESIN
     Dosage: EXTENDED RELEASE
     Route: 048
     Dates: start: 20150916
  3. PRILOSEC [Concomitant]
     Active Substance: OMEPRAZOLE MAGNESIUM
     Dosage: DELAYED RELEASE
     Route: 048
     Dates: start: 20150916
  4. FLUZONE [Concomitant]
     Active Substance: INFLUENZA A VIRUS A/CALIFORNIA/7/2009 X-179A (H1N1) ANTIGEN (FORMALDEHYDE INACTIVATED)\INFLUENZA A VIRUS A/VICTORIA/210/2009 X-187 (H3N2) ANTIGEN (FORMALDEHYDE INACTIVATED)\INFLUENZA B VIRUS B/BRISBANE/60/2008 ANTIGEN (FORMALDEHYDE INACTIVATED)
     Dosage: HIGH DOSE
     Route: 065
     Dates: start: 20151013
  5. XARELTO [Suspect]
     Active Substance: RIVAROXABAN
     Indication: ATRIAL FIBRILLATION
     Route: 048
  6. REQUIP [Concomitant]
     Active Substance: ROPINIROLE HYDROCHLORIDE
     Route: 048
     Dates: start: 20150729
  7. RITUXAN [Concomitant]
     Active Substance: RITUXIMAB
     Dosage: 10 MG/ ML INFUSED Q 8 WEEKS
     Route: 042
     Dates: start: 20150729
  8. TRAMADOL. [Concomitant]
     Active Substance: TRAMADOL
     Route: 048
     Dates: start: 20150807
  9. COLACE [Concomitant]
     Active Substance: DOCUSATE SODIUM
     Route: 048
  10. POTASSIUM CHLORIDE. [Concomitant]
     Active Substance: POTASSIUM CHLORIDE
     Dosage: EXTENDED RELEASE
     Route: 048
     Dates: start: 20150729
  11. TRAZODONE [Concomitant]
     Active Substance: TRAZODONE HYDROCHLORIDE
     Route: 048
     Dates: start: 20150729
  12. FLUTICASONE [Concomitant]
     Active Substance: FLUTICASONE\FLUTICASONE PROPIONATE
     Route: 055
     Dates: start: 20150824
  13. SENNA [Concomitant]
     Active Substance: SENNA LEAF\SENNOSIDES\SENNOSIDES A AND B
     Route: 048
     Dates: start: 20150729
  14. XARELTO [Suspect]
     Active Substance: RIVAROXABAN
     Indication: ATRIAL FIBRILLATION
     Route: 048
     Dates: start: 20150729
  15. GABAPENTINE [Concomitant]
     Active Substance: GABAPENTIN
     Route: 048
     Dates: start: 20150729
  16. LACTULOSE. [Concomitant]
     Active Substance: LACTULOSE
     Dosage: 10 G/15 ML, 30CC
     Route: 048
     Dates: start: 20150803
  17. PREVNAR 13 [Concomitant]
     Active Substance: PNEUMOCOCCAL 13-VALENT CONJUGATE VACCINE
     Route: 065
     Dates: start: 20151013
  18. SOTALOL. [Concomitant]
     Active Substance: SOTALOL
     Route: 048
     Dates: start: 20151001
  19. XARELTO [Suspect]
     Active Substance: RIVAROXABAN
     Indication: CEREBROVASCULAR ACCIDENT PROPHYLAXIS
     Route: 048
  20. ASPIRIN. [Suspect]
     Active Substance: ASPIRIN
     Indication: PRODUCT USED FOR UNKNOWN INDICATION
     Route: 048
     Dates: start: 2000, end: 20151019

REACTIONS (6)
  - Mouth haemorrhage [Unknown]
  - Rectal haemorrhage [Recovered/Resolved]
  - Constipation [Unknown]
  - Inappropriate schedule of drug administration [Unknown]
  - Abnormal loss of weight [Unknown]
  - Cellulitis [Unknown]

NARRATIVE: CASE EVENT DATE: 20150729
